FAERS Safety Report 16246898 (Version 2)
Quarter: 2019Q2

REPORT INFORMATION
  Report Type: Spontaneous
  Country: US (occurrence: US)
  Receive Date: 20190427
  Receipt Date: 20190427
  Transmission Date: 20190711
  Serious: Yes (Other)
  Sender: FDA-Public Use
  Company Number: US-JNJFOC-20190429993

PATIENT
  Sex: Female

DRUGS (4)
  1. INDOMETHACIN. [Suspect]
     Active Substance: INDOMETHACIN
     Indication: CONGENITAL HEART VALVE DISORDER
     Route: 065
  2. INDOMETHACIN. [Suspect]
     Active Substance: INDOMETHACIN
     Indication: CONGENITAL TRICUSPID VALVE STENOSIS
     Route: 065
  3. IBUPROFEN. [Suspect]
     Active Substance: IBUPROFEN
     Indication: CONGENITAL TRICUSPID VALVE STENOSIS
     Route: 065
  4. IBUPROFEN. [Suspect]
     Active Substance: IBUPROFEN
     Indication: CONGENITAL HEART VALVE DISORDER
     Route: 065

REACTIONS (6)
  - Product use in unapproved indication [Unknown]
  - Exposure during pregnancy [Unknown]
  - Oligohydramnios [Unknown]
  - Foetal death [Recovered/Resolved]
  - Premature labour [Unknown]
  - Off label use [Unknown]
